FAERS Safety Report 23648349 (Version 1)
Quarter: 2024Q1

REPORT INFORMATION
  Report Type: Spontaneous
  Country: US (occurrence: US)
  Receive Date: 20240319
  Receipt Date: 20240319
  Transmission Date: 20240409
  Serious: No
  Sender: FDA-Public Use
  Company Number: US-ABBVIE-5680809

PATIENT
  Age: 55 Year
  Sex: Female

DRUGS (1)
  1. FLUOROMETHOLONE [Suspect]
     Active Substance: FLUOROMETHOLONE
     Indication: Product used for unknown indication
     Dosage: 0.1%?ONE DROP ON THE LEFT EYE?FORM STRENGTH:1MG/ML?DURATION TEXT: SINCE 2020 OR 2021
     Route: 047

REACTIONS (2)
  - Abnormal sensation in eye [Recovered/Resolved]
  - Product quality issue [Unknown]

NARRATIVE: CASE EVENT DATE: 20240310
